FAERS Safety Report 8377512-1 (Version None)
Quarter: 2012Q2

REPORT INFORMATION
  Report Type: 
  Country: None (occurrence: None)
  Receive Date: 20120522
  Receipt Date: 20120203
  Transmission Date: 20120825
  Serious: No
  Sender: FDA-Public Use
  Company Number: US-ASTRAZENECA-2012SE07660

PATIENT
  Age: 72 Year
  Sex: Female

DRUGS (3)
  1. NEXIUM [Concomitant]
  2. OMEPRAZOLE [Suspect]
     Indication: MYOCARDIAL INFARCTION
     Route: 048
  3. PLAVIX [Interacting]
     Route: 048
     Dates: start: 20030101

REACTIONS (5)
  - BALANCE DISORDER [None]
  - DIZZINESS [None]
  - BACK PAIN [None]
  - DRUG INTERACTION [None]
  - FEELING ABNORMAL [None]
